FAERS Safety Report 10367923 (Version 1)
Quarter: 2014Q3

REPORT INFORMATION
  Report Type: Spontaneous
  Country: US (occurrence: US)
  Receive Date: 20140807
  Receipt Date: 20140807
  Transmission Date: 20150326
  Serious: No
  Sender: FDA-Public Use
  Company Number: US-PFIZER INC-2014218698

PATIENT
  Age: 78 Year
  Sex: Female
  Weight: 65.08 kg

DRUGS (4)
  1. SYNTHROID [Concomitant]
     Active Substance: LEVOTHYROXINE SODIUM
     Indication: THYROID DISORDER
     Dosage: UNK
  2. PANTOPRAZOLE [Suspect]
     Active Substance: PANTOPRAZOLE SODIUM
     Indication: OESOPHAGEAL MOTILITY DISORDER
     Dosage: 40 MG, 2X/DAY
     Route: 048
     Dates: start: 20140801, end: 20140802
  3. CYTOMEL [Concomitant]
     Active Substance: LIOTHYRONINE SODIUM
     Indication: THYROID DISORDER
     Dosage: UNK
  4. PREVACID [Concomitant]
     Active Substance: LANSOPRAZOLE
     Dosage: UNK

REACTIONS (6)
  - Malaise [Unknown]
  - Insomnia [Unknown]
  - Chest pain [Unknown]
  - Pain [Unknown]
  - Dyspepsia [Unknown]
  - Dyspnoea [Unknown]

NARRATIVE: CASE EVENT DATE: 201408
